FAERS Safety Report 16625064 (Version 1)
Quarter: 2019Q3

REPORT INFORMATION
  Report Type: Spontaneous
  Country: US (occurrence: US)
  Receive Date: 20190611
  Receipt Date: 20190611
  Transmission Date: 20191004
  Serious: No
  Sender: FDA-Public Use
  Company Number: None

PATIENT
  Age: 67 Year
  Sex: Female

DRUGS (1)
  1. FARYDAK [Suspect]
     Active Substance: PANOBINOSTAT
     Indication: PLASMA CELL MYELOMA
     Route: 048
     Dates: start: 20190514

REACTIONS (11)
  - Vomiting [None]
  - Dizziness [None]
  - Chest pain [None]
  - Chest discomfort [None]
  - Gastrooesophageal reflux disease [None]
  - Nausea [None]
  - Tachycardia [None]
  - Decreased appetite [None]
  - Fatigue [None]
  - Productive cough [None]
  - Diarrhoea [None]

NARRATIVE: CASE EVENT DATE: 201905
